FAERS Safety Report 6154742-0 (Version None)
Quarter: 2009Q2

REPORT INFORMATION
  Report Type: 
  Country: None (occurrence: None)
  Receive Date: 20090414
  Receipt Date: 20090408
  Transmission Date: 20091009
  Serious: Yes (Other)
  Sender: FDA-Public Use
  Company Number: D0061255A

PATIENT
  Age: 25 Year
  Sex: Female

DRUGS (1)
  1. PAROXETINE HCL [Suspect]
     Indication: ANXIETY DISORDER
     Dosage: 20MG PER DAY
     Route: 048
     Dates: start: 20020101

REACTIONS (4)
  - HEADACHE [None]
  - SPEECH DISORDER [None]
  - TREMOR [None]
  - VISUAL FIELD DEFECT [None]
